FAERS Safety Report 11964929 (Version 1)
Quarter: 2016Q1

REPORT INFORMATION
  Report Type: Spontaneous
  Country: GB (occurrence: GB)
  Receive Date: 20160127
  Receipt Date: 20160127
  Transmission Date: 20160526
  Serious: Yes (Death, Life-Threatening, Hospitalization, Disabling)
  Sender: FDA-Public Use
  Company Number: GB-ACCORD-037194

PATIENT
  Age: 67 Year
  Sex: Female

DRUGS (19)
  1. ALFENTANIL. [Concomitant]
     Active Substance: ALFENTANIL
  2. METHYLPREDNISOLONE. [Concomitant]
     Active Substance: METHYLPREDNISOLONE
  3. NAPROXEN. [Concomitant]
     Active Substance: NAPROXEN
  4. PROPOFOL. [Concomitant]
     Active Substance: PROPOFOL
  5. FOLATE SODIUM/FOLIC ACID [Concomitant]
  6. HUMAN ACTRAPID [Concomitant]
     Active Substance: INSULIN HUMAN
  7. PIPERACILLIN AND TAZOBACTAM [Concomitant]
     Active Substance: PIPERACILLIN SODIUM\TAZOBACTAM SODIUM
  8. PREDNISOLONE. [Concomitant]
     Active Substance: PREDNISOLONE
  9. ETANERCEPT [Concomitant]
     Active Substance: ETANERCEPT
  10. OMEPRAZOLE. [Concomitant]
     Active Substance: OMEPRAZOLE
  11. SENNA [Concomitant]
     Active Substance: SENNA LEAF\SENNOSIDES\SENNOSIDES A AND B
  12. SEPTRIN [Concomitant]
     Active Substance: SULFAMETHOXAZOLE\TRIMETHOPRIM
  13. ENOXAPARIN [Concomitant]
     Active Substance: ENOXAPARIN
  14. RAMIPRIL. [Concomitant]
     Active Substance: RAMIPRIL
  15. FUROSEMIDE. [Concomitant]
     Active Substance: FUROSEMIDE
  16. NOREPINEPHRINE [Concomitant]
     Active Substance: NOREPINEPHRINE\NOREPINEPHRINE BITARTRATE
  17. METHOTREXATE [Suspect]
     Active Substance: METHOTREXATE
     Indication: RHEUMATOID ARTHRITIS
     Route: 048
     Dates: start: 2012, end: 2015
  18. IRON [Concomitant]
     Active Substance: IRON
  19. METRONIDAZOLE. [Concomitant]
     Active Substance: METRONIDAZOLE

REACTIONS (6)
  - Renal failure [Not Recovered/Not Resolved]
  - Dyspnoea [Not Recovered/Not Resolved]
  - Sepsis [Not Recovered/Not Resolved]
  - Alveolitis [Fatal]
  - Respiratory failure [Not Recovered/Not Resolved]
  - Multiple organ dysfunction syndrome [Fatal]

NARRATIVE: CASE EVENT DATE: 20151002
